FAERS Safety Report 9452300 (Version 1)
Quarter: 2013Q3

REPORT INFORMATION
  Report Type: Spontaneous
  Country: US (occurrence: None)
  Receive Date: 20130808
  Receipt Date: 20130808
  Transmission Date: 20140515
  Serious: Yes (Other)
  Sender: FDA-Public Use
  Company Number: None

PATIENT
  Age: 70 Year
  Sex: Male
  Weight: 88.45 kg

DRUGS (9)
  1. AMLODIPINE BESYLATE [Suspect]
     Indication: BLOOD CHOLESTEROL INCREASED
     Dosage: 1 TAB/DAY AT BEDTIME ORAL?~JUNE 23 (HAVE NOT STOPPED)
     Route: 048
  2. AMLODIPINE BESYLATE [Suspect]
     Indication: BLOOD PRESSURE INCREASED
     Dosage: 1 TAB/DAY AT BEDTIME ORAL?~JUNE 23 (HAVE NOT STOPPED)
     Route: 048
  3. FLUOXETINE HCL [Concomitant]
  4. LEVOTHYROXINE [Concomitant]
  5. NIACIN [Concomitant]
  6. ASPIRIN [Concomitant]
  7. PSEUDOEPHEDRINE [Concomitant]
  8. NIACENAMIDE [Concomitant]
  9. HYDROCHLOROTHIAZINE [Concomitant]

REACTIONS (4)
  - Haemorrhage subcutaneous [None]
  - Blister [None]
  - Arthropod bite [None]
  - Contusion [None]
